FAERS Safety Report 18464245 (Version 1)
Quarter: 2020Q4

REPORT INFORMATION
  Report Type: Spontaneous
  Country: DE (occurrence: DE)
  Receive Date: 20201104
  Receipt Date: 20201104
  Transmission Date: 20210114
  Serious: No
  Sender: FDA-Public Use
  Company Number: DE-JAZZ-2020-DE-012814

PATIENT
  Age: 13 Year
  Sex: Female

DRUGS (3)
  1. DEFITELIO [Suspect]
     Active Substance: DEFIBROTIDE SODIUM
     Indication: COVID-19
     Dosage: 4 MILLIGRAM/KILOGRAM, QID(FIRST DAY)
     Route: 065
  2. HEPARIN [Concomitant]
     Active Substance: HEPARIN SODIUM
     Dosage: 5 UNITS/KG/HR
  3. DEFITELIO [Suspect]
     Active Substance: DEFIBROTIDE SODIUM
     Dosage: 6 MILLIGRAM/KILOGRAM, QID(THREE DAYS)
     Route: 065

REACTIONS (1)
  - Off label use [Unknown]
